FAERS Safety Report 6886558-1 (Version None)
Quarter: 2010Q3

REPORT INFORMATION
  Report Type: 
  Country: None (occurrence: None)
  Receive Date: 20100730
  Receipt Date: 20100720
  Transmission Date: 20110219
  Serious: No
  Sender: FDA-Public Use
  Company Number: US-BIOGENIDEC-2010BI017791

PATIENT
  Age: 20 Year
  Sex: Female

DRUGS (2)
  1. TYSABRI [Suspect]
     Indication: MULTIPLE SCLEROSIS
     Route: 042
     Dates: start: 20091102, end: 20091101
  2. TYSABRI [Suspect]
     Route: 042
     Dates: start: 20100401

REACTIONS (4)
  - BURNING SENSATION [None]
  - CHEST PAIN [None]
  - FATIGUE [None]
  - PRURITUS ALLERGIC [None]
